FAERS Safety Report 7092255-2 (Version None)
Quarter: 2010Q4

REPORT INFORMATION
  Report Type: 
  Country: None (occurrence: None)
  Receive Date: 20101109
  Receipt Date: 20101025
  Transmission Date: 20110411
  Serious: Yes (Other)
  Sender: FDA-Public Use
  Company Number: ES-AMGEN-ESPSP2010001801

PATIENT

DRUGS (1)
  1. ENBREL [Suspect]
     Dosage: UNKNOWN

REACTIONS (1)
  - BRAIN MASS [None]
